FAERS Safety Report 7764776-8 (Version None)
Quarter: 2011Q3

REPORT INFORMATION
  Report Type: 
  Country: None (occurrence: None)
  Receive Date: 20110921
  Receipt Date: 20110921
  Transmission Date: 20111222
  Serious: Yes (Other)
  Sender: FDA-Public Use
  Company Number: None

PATIENT
  Sex: Female
  Weight: 45.6 kg

DRUGS (1)
  1. INFLIXIMAB [Suspect]
     Dosage: 300MG
     Route: 042

REACTIONS (7)
  - INFUSION RELATED REACTION [None]
  - DRUG HYPERSENSITIVITY [None]
  - CHEST DISCOMFORT [None]
  - NERVOUSNESS [None]
  - FLUSHING [None]
  - OROPHARYNGEAL DISCOMFORT [None]
  - DYSPNOEA [None]
